FAERS Safety Report 9443620 (Version 1)
Quarter: 2013Q3

REPORT INFORMATION
  Report Type: Spontaneous
  Country: GB (occurrence: GB)
  Receive Date: 20130806
  Receipt Date: 20130806
  Transmission Date: 20140515
  Serious: Yes (Other)
  Sender: FDA-Public Use
  Company Number: PHHY2013GB079402

PATIENT
  Age: 37 Year
  Sex: Female
  Weight: 55 kg

DRUGS (8)
  1. PAMIDRONATE [Suspect]
     Dosage: 30 MG, DAILY
  2. PARACETAMOL [Suspect]
     Indication: PAIN
     Dosage: 4 G
  3. CODEINE PHOSPHATE [Suspect]
     Indication: PAIN
     Dosage: 240 MG, DAILY
  4. PETHIDINE [Concomitant]
     Dosage: 100 MG
     Route: 030
  5. CO-CODAMOL [Concomitant]
     Dosage: 30/500 MG, EIGHT TABLET DAILY
  6. ANALGESICS [Concomitant]
     Dosage: UNK UKN, UNK
  7. CALCIUM [Concomitant]
     Dosage: 1000 MG, DAILY
  8. VITAMIN D [Concomitant]
     Dosage: 800 IU, DAILY

REACTIONS (7)
  - Joint effusion [Unknown]
  - Bone marrow oedema [Unknown]
  - Fracture [Unknown]
  - Feeling abnormal [Unknown]
  - Arthralgia [Unknown]
  - Maternal exposure timing unspecified [Unknown]
  - Normal newborn [Unknown]
